FAERS Safety Report 5426483-6 (Version None)
Quarter: 2007Q3

REPORT INFORMATION
  Report Type: 
  Country: None (occurrence: None)
  Receive Date: 20070731
  Receipt Date: 20070525
  Transmission Date: 20080115
  Serious: No
  Sender: FDA-Public Use
  Company Number: US200706005250

PATIENT
  Age: 36 Year
  Sex: Male

DRUGS (5)
  1. BYETTA [Suspect]
     Indication: TYPE 2 DIABETES MELLITUS
     Dosage: 5 UG, SUBCUTANEOUS  10 UG, 2/D, SUBCUTANEOUS   5 UG, 2/D, SUBCUTANEOUS
     Route: 058
     Dates: start: 20050101
  2. BYETTA [Suspect]
     Indication: TYPE 2 DIABETES MELLITUS
     Dosage: 5 UG, SUBCUTANEOUS  10 UG, 2/D, SUBCUTANEOUS   5 UG, 2/D, SUBCUTANEOUS
     Route: 058
     Dates: start: 20070501
  3. DRUG USED IN DIABETES [Concomitant]
  4. GLIMEPIRIDE [Concomitant]
  5. ACIPHEX [Concomitant]

REACTIONS (3)
  - INJECTION SITE EXTRAVASATION [None]
  - NAUSEA [None]
  - SALIVARY HYPERSECRETION [None]
